FAERS Safety Report 6405341-4 (Version None)
Quarter: 2009Q4

REPORT INFORMATION
  Report Type: 
  Country: None (occurrence: None)
  Receive Date: 20091019
  Receipt Date: 20091006
  Transmission Date: 20100525
  Serious: Yes (Other)
  Sender: FDA-Public Use
  Company Number: PHEH2009US13307

PATIENT
  Sex: Female

DRUGS (11)
  1. GLEEVEC [Suspect]
     Indication: NEOPLASM
     Dosage: 300 MG, QD
     Route: 048
     Dates: start: 20010101
  2. HYOSCYAMINE [Concomitant]
     Dosage: UNK, UNK
  3. AMBIEN [Concomitant]
     Dosage: UNK, UNK
  4. PRAVACHOL [Concomitant]
     Dosage: UNK, UNK
  5. TRIAMTERENE AND HYDROCHLOROTHIAZIDE [Concomitant]
     Dosage: UNK, UNK
  6. TRICOR [Concomitant]
     Dosage: UNK, UNK
  7. NEURONTIN [Concomitant]
     Dosage: UNK, UNK
  8. GABAPENTIN [Concomitant]
     Dosage: UNK, UNK
  9. LOMOTIL [Concomitant]
     Dosage: UNK, UNK
  10. OMEPRAZOLE [Concomitant]
     Dosage: UNK, UNK
  11. VITAMIN B-12 [Concomitant]
     Dosage: UNK, UNK

REACTIONS (8)
  - ARTHRALGIA [None]
  - FACE OEDEMA [None]
  - GASTRIC ULCER [None]
  - LOOSE TOOTH [None]
  - OEDEMA PERIPHERAL [None]
  - OESOPHAGEAL ULCER HAEMORRHAGE [None]
  - PYREXIA [None]
  - TOOTH LOSS [None]
